FAERS Safety Report 10293300 (Version 2)
Quarter: 2014Q3

REPORT INFORMATION
  Report Type: Spontaneous
  Country: US (occurrence: US)
  Receive Date: 20140710
  Receipt Date: 20140815
  Transmission Date: 20150326
  Serious: Yes (Death, Hospitalization)
  Sender: FDA-Public Use
  Company Number: US-GLAXOSMITHKLINE-A1068738A

PATIENT
  Age: 73 Year
  Sex: Male

DRUGS (2)
  1. NO CONCURRENT MEDICATION [Concomitant]
     Active Substance: UNSPECIFIED INGREDIENT
  2. VENTOLIN [Suspect]
     Active Substance: ALBUTEROL SULFATE
     Indication: DYSPNOEA
     Dosage: 90MCG UNKNOWN
     Route: 055
     Dates: start: 20140224

REACTIONS (9)
  - Death [Fatal]
  - Cardiac arrest [Unknown]
  - Arteriosclerosis [Unknown]
  - Multi-organ failure [Unknown]
  - Drug dose omission [Unknown]
  - Therapy cessation [Unknown]
  - Myocardial infarction [Unknown]
  - Cardiac disorder [Unknown]
  - Inhalation therapy [Not Recovered/Not Resolved]

NARRATIVE: CASE EVENT DATE: 201406
